FAERS Safety Report 13945634 (Version 2)
Quarter: 2017Q3

REPORT INFORMATION
  Report Type: Report from Study
  Country: US (occurrence: US)
  Receive Date: 20170907
  Receipt Date: 20170918
  Transmission Date: 20171128
  Serious: Yes (Other)
  Sender: FDA-Public Use
  Company Number: US-PFIZER INC-2017381664

PATIENT
  Sex: Male

DRUGS (4)
  1. DEXAMETHASONE. [Concomitant]
     Active Substance: DEXAMETHASONE
     Indication: PREMEDICATION
     Dosage: 8 MG, CYCLIC (12 HOURS AND 6 HOURS PRIOR TO DOCETAXEL)
     Route: 048
  2. BEVACIZUMAB. [Suspect]
     Active Substance: BEVACIZUMAB
     Indication: HORMONE-REFRACTORY PROSTATE CANCER
     Dosage: 15 MG/KG, CYCLIC (DAY 1 ADMINISTERED PRIOR TO DOCETAXEL, 21 DAY CYCLE)
  3. EVEROLIMUS [Suspect]
     Active Substance: EVEROLIMUS
     Indication: HORMONE-REFRACTORY PROSTATE CANCER
     Dosage: 5 MG, CYCLIC (STARTING DAY 2 OF CYCLE 1, EVERY 21 DAYS)
     Route: 048
  4. DOCETAXEL. [Suspect]
     Active Substance: DOCETAXEL
     Indication: HORMONE-REFRACTORY PROSTATE CANCER
     Dosage: 65 MG/M2, CYCLIC (ON DAY 1, EVERY 21 DAYS)
     Route: 042

REACTIONS (1)
  - Pulmonary embolism [Unknown]
